FAERS Safety Report 9964920 (Version 2)
Quarter: 2014Q1

REPORT INFORMATION
  Report Type: Spontaneous
  Country: US (occurrence: US)
  Receive Date: 20140305
  Receipt Date: 20140305
  Transmission Date: 20141002
  Serious: No
  Sender: FDA-Public Use
  Company Number: US-AMGEN-USASP2013086393

PATIENT
  Age: 57 Year
  Sex: Female
  Weight: 85.71 kg

DRUGS (2)
  1. ENBREL [Suspect]
     Indication: PSORIASIS
     Dosage: 50 MG, 2 TIMES/WK
     Route: 065
     Dates: start: 20131203, end: 20140117
  2. IBUPROFEN [Concomitant]
     Dosage: UNK UNK, AS NECESSARY

REACTIONS (8)
  - Fatigue [Not Recovered/Not Resolved]
  - Skin irritation [Not Recovered/Not Resolved]
  - Pruritus [Not Recovered/Not Resolved]
  - Blister [Not Recovered/Not Resolved]
  - Dry skin [Unknown]
  - Antinuclear antibody [Unknown]
  - Injection site pain [Not Recovered/Not Resolved]
  - Pustular psoriasis [Unknown]
